FAERS Safety Report 25879623 (Version 3)
Quarter: 2025Q4

REPORT INFORMATION
  Report Type: Spontaneous
  Country: EU (occurrence: EU)
  Receive Date: 20251003
  Receipt Date: 20251228
  Transmission Date: 20260118
  Serious: Yes (Other)
  Sender: SANOFI AVENTIS
  Company Number: EU-DialogSolutions-SAAVPROD-PI826261-C1

PATIENT
  Age: 46 Year
  Sex: Female

DRUGS (7)
  1. RIFAMPIN [Suspect]
     Active Substance: RIFAMPIN
     Indication: Latent tuberculosis
     Dosage: 600 MG, QD
  2. ISONIAZID\PYRIDOXINE HYDROCHLORIDE [Concomitant]
     Active Substance: ISONIAZID\PYRIDOXINE HYDROCHLORIDE
     Indication: Latent tuberculosis
     Dosage: 300 MG/50 MG QD
  3. ISONIAZID\PYRIDOXINE HYDROCHLORIDE [Concomitant]
     Active Substance: ISONIAZID\PYRIDOXINE HYDROCHLORIDE
     Dosage: 300 MG/50 MG QD
  4. CERTOLIZUMAB [Concomitant]
     Active Substance: CERTOLIZUMAB
     Indication: Psoriatic arthropathy
     Dosage: 400 MG WEEKS 0, 2 AND 4
  5. CERTOLIZUMAB [Concomitant]
     Active Substance: CERTOLIZUMAB
     Dosage: 200 MG, QOW
  6. PREDNISONE [Concomitant]
     Active Substance: PREDNISONE
     Indication: Psoriatic arthropathy
     Dosage: 20 MG, QD
     Route: 048
  7. METHOTREXATE [Concomitant]
     Active Substance: METHOTREXATE
     Indication: Psoriatic arthropathy
     Dosage: 15 MG, QW
     Route: 058

REACTIONS (1)
  - Neutropenia [Recovered/Resolved]
